FAERS Safety Report 7527894-5 (Version None)
Quarter: 2011Q2

REPORT INFORMATION
  Report Type: 
  Country: None (occurrence: None)
  Receive Date: 20110607
  Receipt Date: 20030508
  Transmission Date: 20111010
  Serious: Yes (Other)
  Sender: FDA-Public Use
  Company Number: PHFR2003GB01019

PATIENT
  Sex: Male

DRUGS (2)
  1. CLOZARIL [Suspect]
     Indication: SCHIZOPHRENIA
     Dosage: 750 MG/DAY
     Route: 048
     Dates: start: 20011218
  2. LORAZEPAM [Concomitant]
     Indication: AGITATION
     Dosage: .5 MG, TID
     Route: 048

REACTIONS (8)
  - URINARY TRACT INFECTION [None]
  - WHITE BLOOD CELL COUNT INCREASED [None]
  - PYREXIA [None]
  - NEUTROPHIL COUNT INCREASED [None]
  - VIRAL INFECTION [None]
  - ORTHOSTATIC HYPOTENSION [None]
  - MALAISE [None]
  - VOMITING [None]
